FAERS Safety Report 5360302-1 (Version None)
Quarter: 2007Q2

REPORT INFORMATION
  Report Type: 
  Country: None (occurrence: None)
  Receive Date: 20070614
  Receipt Date: 20070530
  Transmission Date: 20071010
  Serious: Yes (Hospitalization)
  Sender: FDA-Public Use
  Company Number: M-07-0414

PATIENT
  Age: 80 Year
  Sex: Female

DRUGS (6)
  1. PACERONE [Suspect]
     Dosage: 200 MG, QD, PO
     Route: 048
     Dates: start: 20070101
  2. PACERONE [Suspect]
     Dosage: 200 MG, BID, PO
     Route: 048
     Dates: end: 20070101
  3. SYNTHROID [Concomitant]
  4. ARICEPT [Concomitant]
  5. VYTORIN [Concomitant]
  6. VOLTAREN [Concomitant]

REACTIONS (1)
  - HYPERTENSION [None]
